FAERS Safety Report 10353370 (Version 2)
Quarter: 2014Q3

REPORT INFORMATION
  Report Type: Spontaneous
  Country: JP (occurrence: JP)
  Receive Date: 20140731
  Receipt Date: 20140820
  Transmission Date: 20150326
  Serious: No
  Sender: FDA-Public Use
  Company Number: JP-ROCHE-1442502

PATIENT
  Age: 49 Year
  Sex: Female
  Weight: 57 kg

DRUGS (6)
  1. TAXOTERE [Concomitant]
     Active Substance: DOCETAXEL
     Indication: BREAST CANCER
     Route: 041
     Dates: start: 20140226, end: 20140612
  2. HERCEPTIN [Suspect]
     Active Substance: TRASTUZUMAB
     Indication: BREAST CANCER
     Route: 041
     Dates: start: 20140319, end: 20140612
  3. ENDOXAN [Concomitant]
     Active Substance: CYCLOPHOSPHAMIDE
     Indication: BREAST CANCER
     Route: 041
     Dates: start: 20140226, end: 20140612
  4. HERCEPTIN [Suspect]
     Active Substance: TRASTUZUMAB
     Indication: BREAST CANCER
     Route: 041
     Dates: start: 20140225, end: 20140225
  5. HERCEPTIN [Suspect]
     Active Substance: TRASTUZUMAB
     Dosage: LAST DOSE PRIOR TO ADVERSE EVENT: 24/JUL/2014
     Route: 041
     Dates: start: 20140724
  6. MARZULENE-S [Concomitant]
     Active Substance: SODIUM GUALENATE
     Indication: GASTRITIS
     Dosage: AFTER THE MEAL
     Route: 065
     Dates: start: 20140311

REACTIONS (4)
  - Pyrexia [Recovering/Resolving]
  - Oedema peripheral [Recovered/Resolved]
  - Erythema [Recovered/Resolved]
  - Arthropod bite [Unknown]

NARRATIVE: CASE EVENT DATE: 20140724
